FAERS Safety Report 14232354 (Version 1)
Quarter: 2017Q4

REPORT INFORMATION
  Report Type: Spontaneous
  Country: EG (occurrence: EG)
  Receive Date: 20171128
  Receipt Date: 20171128
  Transmission Date: 20180321
  Serious: Yes (Other)
  Sender: FDA-Public Use
  Company Number: EG-BAUSCH-BL-2017-032103

PATIENT
  Age: 35 Year
  Sex: Male

DRUGS (2)
  1. ACYCLOVIR. [Suspect]
     Active Substance: ACYCLOVIR
     Indication: ENCEPHALITIS VIRAL
     Dosage: 750 MG/8 HOURS
     Route: 042
  2. ACYCLOVIR. [Suspect]
     Active Substance: ACYCLOVIR
     Dosage: DOSE ADJUSTMENT: 750 MG/24 HOURS
     Route: 042

REACTIONS (1)
  - Nephropathy [Recovering/Resolving]
